FAERS Safety Report 19678678 (Version 1)
Quarter: 2021Q3

REPORT INFORMATION
  Report Type: Spontaneous
  Country: US (occurrence: US)
  Receive Date: 20210809
  Receipt Date: 20210809
  Transmission Date: 20211014
  Serious: No
  Sender: FDA-Public Use
  Company Number: US-PFIZER INC-2021787632

PATIENT
  Age: 79 Year

DRUGS (1)
  1. CELECOXIB. [Suspect]
     Active Substance: CELECOXIB
     Dosage: UNK

REACTIONS (5)
  - Drug ineffective [Unknown]
  - Arthritis [Unknown]
  - Feeling abnormal [Unknown]
  - Gait disturbance [Unknown]
  - Musculoskeletal disorder [Unknown]
